FAERS Safety Report 9718897 (Version 1)
Quarter: 2013Q4

REPORT INFORMATION
  Report Type: Report from Study
  Country: US (occurrence: US)
  Receive Date: 20131127
  Receipt Date: 20131127
  Transmission Date: 20140711
  Serious: Yes (Other)
  Sender: FDA-Public Use
  Company Number: US-ABBVIE-13P-163-1172857-00

PATIENT
  Age: 26 Year
  Sex: Female
  Weight: 59.02 kg

DRUGS (4)
  1. HUMIRA [Suspect]
     Indication: CROHN^S DISEASE
     Route: 058
     Dates: start: 201211
  2. IRON [Concomitant]
     Indication: MINERAL SUPPLEMENTATION
     Route: 048
  3. PRENATAL VITAMINS [Concomitant]
     Indication: VITAMIN SUPPLEMENTATION
     Route: 048
     Dates: start: 2012
  4. OXYCODONE [Concomitant]
     Indication: PAIN
     Route: 048
     Dates: start: 201311

REACTIONS (8)
  - Prolonged rupture of membranes [Recovered/Resolved]
  - Pyrexia [Recovered/Resolved]
  - Labour complication [Recovered/Resolved]
  - Dermal cyst [Recovered/Resolved]
  - Nasopharyngitis [Not Recovered/Not Resolved]
  - Throat irritation [Not Recovered/Not Resolved]
  - Cough [Not Recovered/Not Resolved]
  - Infection [Recovered/Resolved]
